FAERS Safety Report 5208273-2 (Version None)
Quarter: 2006Q4

REPORT INFORMATION
  Report Type: 
  Country: None (occurrence: None)
  Receive Date: 20061027
  Receipt Date: 20051221
  Transmission Date: 20070319
  Serious: Yes (Other)
  Sender: FDA-Public Use
  Company Number: HQWYE142623DEC05

PATIENT
  Age: 50 Year
  Sex: Female
  Weight: 77.18 kg

DRUGS (4)
  1. PREMARIN [Suspect]
     Indication: HYSTERECTOMY
     Dosage: SEE IMAGE
     Route: 048
     Dates: start: 20050101, end: 20050101
  2. PREMARIN [Suspect]
     Indication: HYSTERECTOMY
     Dosage: SEE IMAGE
     Route: 048
     Dates: start: 20000101, end: 20050501
  3. PREMARIN [Suspect]
     Indication: HYSTERECTOMY
     Dosage: SEE IMAGE
     Route: 048
     Dates: start: 20050101
  4. ZOLOFT [Concomitant]

REACTIONS (3)
  - DEPRESSION [None]
  - FEELING HOT [None]
  - POOR QUALITY SLEEP [None]
